FAERS Safety Report 6834303-8 (Version None)
Quarter: 2010Q3

REPORT INFORMATION
  Report Type: 
  Country: None (occurrence: None)
  Receive Date: 20100712
  Receipt Date: 20070416
  Transmission Date: 20110219
  Serious: No
  Sender: FDA-Public Use
  Company Number: US-PFIZER INC-2007031467

PATIENT
  Sex: Female
  Weight: 38 kg

DRUGS (5)
  1. CHANTIX [Suspect]
     Indication: SMOKING CESSATION THERAPY
     Dates: start: 20070327
  2. ANTIHYPERTENSIVES [Concomitant]
     Indication: HYPERTENSION
  3. ANTI-ASTHMATICS [Concomitant]
     Indication: ASTHMA
     Route: 055
  4. ZOCOR [Concomitant]
  5. MONTELUKAST SODIUM [Concomitant]

REACTIONS (4)
  - ABDOMINAL DISTENSION [None]
  - MALAISE [None]
  - NAUSEA [None]
  - VOMITING [None]
